FAERS Safety Report 7565172-9 (Version None)
Quarter: 2011Q2

REPORT INFORMATION
  Report Type: 
  Country: None (occurrence: None)
  Receive Date: 20110622
  Receipt Date: 20110621
  Transmission Date: 20111010
  Serious: Yes (Other)
  Sender: FDA-Public Use
  Company Number: US-MYLANLABS-2011S1007876

PATIENT
  Age: 41 Year
  Sex: Male

DRUGS (2)
  1. CLOZAPINE [Suspect]
     Route: 048
     Dates: end: 20110419
  2. CLOZAPINE [Suspect]
     Route: 048
     Dates: start: 20110420

REACTIONS (1)
  - GRANULOCYTOPENIA [None]
